FAERS Safety Report 7273966-2 (Version None)
Quarter: 2011Q1

REPORT INFORMATION
  Report Type: 
  Country: None (occurrence: None)
  Receive Date: 20110203
  Receipt Date: 20110126
  Transmission Date: 20110831
  Serious: Yes (Hospitalization, Other)
  Sender: FDA-Public Use
  Company Number: US-MERCK-1006USA01069

PATIENT
  Age: 64 Year
  Sex: Female

DRUGS (2)
  1. FOSAMAX [Suspect]
     Route: 048
     Dates: start: 20080616, end: 20100314
  2. FOSAMAX [Suspect]
     Indication: OSTEOPOROSIS
     Route: 048
     Dates: start: 20020517, end: 20080601

REACTIONS (10)
  - LOW TURNOVER OSTEOPATHY [None]
  - FEMUR FRACTURE [None]
  - FRACTURE DELAYED UNION [None]
  - CHEST PAIN [None]
  - URINARY TRACT INFECTION [None]
  - CORONARY ARTERY BYPASS [None]
  - NEPHROLITHIASIS [None]
  - BRONCHITIS [None]
  - SPINAL DISORDER [None]
  - ORAL DISORDER [None]
